FAERS Safety Report 23539686 (Version 3)
Quarter: 2024Q3

REPORT INFORMATION
  Report Type: Spontaneous
  Country: US (occurrence: US)
  Receive Date: 20240219
  Receipt Date: 20240818
  Transmission Date: 20241016
  Serious: Yes (Other)
  Sender: BRISTOL MYERS SQUIBB
  Company Number: US-BRISTOL-MYERS SQUIBB COMPANY-2024-024259

PATIENT
  Age: 68 Year
  Sex: Female

DRUGS (1)
  1. REVLIMID [Suspect]
     Active Substance: LENALIDOMIDE
     Indication: Plasma cell myeloma
     Dosage: QD FOR 14 DAYS THEN 7 DAYS OFF
     Route: 048

REACTIONS (4)
  - Laryngitis [Recovering/Resolving]
  - Breast cancer [Unknown]
  - Off label use [Unknown]
  - Upper-airway cough syndrome [Unknown]
